FAERS Safety Report 15376706 (Version 10)
Quarter: 2021Q2

REPORT INFORMATION
  Report Type: Spontaneous
  Country: CA (occurrence: CA)
  Receive Date: 20180913
  Receipt Date: 20210611
  Transmission Date: 20210716
  Serious: Yes (Disabling, Other)
  Sender: FDA-Public Use
  Company Number: CA-CELLTRION INC.-2018CA022414

PATIENT

DRUGS (29)
  1. INFLECTRA [Suspect]
     Active Substance: INFLIXIMAB-DYYB
     Dosage: 400 MG, ( WEEKS 0, 2, 6 AND EVERY 8 WEEKS THEREAFTER )
     Route: 042
     Dates: start: 20200626
  2. CIPRODEX [Concomitant]
     Active Substance: CIPROFLOXACIN HYDROCHLORIDE\DEXAMETHASONE
     Indication: EAR INFECTION
     Dosage: UNK
     Dates: start: 202006
  3. VITAMIN D [Concomitant]
     Active Substance: VITAMIN D NOS
     Dosage: UNK
     Route: 048
  4. VIMOVO [Concomitant]
     Active Substance: ESOMEPRAZOLE MAGNESIUM\NAPROXEN
     Dosage: UNK
  5. DIPHENHYDRAMINE. [Concomitant]
     Active Substance: DIPHENHYDRAMINE
     Indication: PREMEDICATION
     Dosage: 50 MG
     Route: 048
     Dates: start: 20210601, end: 20210601
  6. INFLECTRA [Suspect]
     Active Substance: INFLIXIMAB-DYYB
     Dosage: 400 MG, ( WEEKS 0, 2, 6 AND EVERY 8 WEEKS THEREAFTER )
     Route: 042
     Dates: start: 20200501
  7. INFLECTRA [Suspect]
     Active Substance: INFLIXIMAB-DYYB
     Dosage: 400 MG, ( WEEKS 0, 2, 6 AND EVERY 8 WEEKS THEREAFTER )
     Route: 042
     Dates: start: 20210205
  8. INFLECTRA [Suspect]
     Active Substance: INFLIXIMAB-DYYB
     Dosage: 400 MG, ( WEEKS 0, 2, 6 AND EVERY 8 WEEKS THEREAFTER )
     Route: 042
     Dates: start: 20210601, end: 20210601
  9. CLONAZEPAM. [Concomitant]
     Active Substance: CLONAZEPAM
     Dosage: UNK
  10. INFLECTRA [Suspect]
     Active Substance: INFLIXIMAB-DYYB
     Dosage: 400 MG, ( WEEKS 0, 2, 6 AND EVERY 8 WEEKS THEREAFTER )
     Route: 042
     Dates: start: 20200821
  11. INFLECTRA [Suspect]
     Active Substance: INFLIXIMAB-DYYB
     Dosage: 400 MG, ( WEEKS 0, 2, 6 AND EVERY 8 WEEKS THEREAFTER )
     Route: 042
     Dates: start: 20201211
  12. NAPROXEN. [Concomitant]
     Active Substance: NAPROXEN
     Dosage: UNK
  13. VITAMIN B12 [Concomitant]
     Active Substance: CYANOCOBALAMIN
     Dosage: UNK
     Route: 048
  14. HYDROCORTISONE. [Concomitant]
     Active Substance: HYDROCORTISONE
     Indication: PREMEDICATION
     Dosage: 100 MG
     Route: 042
     Dates: start: 20210601, end: 20210601
  15. INFLECTRA [Suspect]
     Active Substance: INFLIXIMAB-DYYB
     Indication: CROHN^S DISEASE
     Dosage: 400 MG, ( WEEKS 0, 2, 6 AND EVERY 8 WEEKS THEREAFTER )
     Route: 042
     Dates: start: 20180827
  16. QUETIAPINE. [Concomitant]
     Active Substance: QUETIAPINE
     Dosage: UNK
     Route: 065
  17. INFLECTRA [Suspect]
     Active Substance: INFLIXIMAB-DYYB
     Dosage: 400 MG, ( WEEKS 0, 2, 6 AND EVERY 8 WEEKS THEREAFTER )
     Route: 042
     Dates: start: 20201211
  18. AZATHIOPRINE. [Concomitant]
     Active Substance: AZATHIOPRINE
     Dosage: UNK
     Route: 065
  19. ACETAMINOPHEN. [Concomitant]
     Active Substance: ACETAMINOPHEN
     Indication: PREMEDICATION
     Dosage: 650 MG
     Route: 048
     Dates: start: 20210601, end: 20210601
  20. INFLECTRA [Suspect]
     Active Substance: INFLIXIMAB-DYYB
     Dosage: 400 MG, ( WEEKS 0, 2, 6 AND EVERY 8 WEEKS THEREAFTER )
     Route: 042
     Dates: start: 20190527
  21. INFLECTRA [Suspect]
     Active Substance: INFLIXIMAB-DYYB
     Dosage: 400 MG, ( WEEKS 0, 2, 6 AND EVERY 8 WEEKS THEREAFTER )
     Route: 042
     Dates: start: 20190919
  22. INFLECTRA [Suspect]
     Active Substance: INFLIXIMAB-DYYB
     Dosage: 400 MG, ( WEEKS 0, 2, 6 AND EVERY 8 WEEKS THEREAFTER )
     Route: 042
     Dates: start: 20191114
  23. INFLECTRA [Suspect]
     Active Substance: INFLIXIMAB-DYYB
     Dosage: 400 MG, ( WEEKS 0, 2, 6 AND EVERY 8 WEEKS THEREAFTER )
     Route: 042
     Dates: start: 20200501
  24. INFLECTRA [Suspect]
     Active Substance: INFLIXIMAB-DYYB
     Dosage: 400 MG, ( WEEKS 0, 2, 6 AND EVERY 8 WEEKS THEREAFTER )
     Route: 042
     Dates: start: 20210406, end: 20210406
  25. INFLECTRA [Suspect]
     Active Substance: INFLIXIMAB-DYYB
     Dosage: 400 MG, ( WEEKS 0, 2, 6 AND EVERY 8 WEEKS THEREAFTER )
     Route: 042
     Dates: start: 20210601
  26. SEROQUEL [Concomitant]
     Active Substance: QUETIAPINE FUMARATE
     Dosage: UNK
     Route: 065
  27. INFLECTRA [Suspect]
     Active Substance: INFLIXIMAB-DYYB
     Dosage: 400 MG, ( WEEKS 0, 2, 6 AND EVERY 8 WEEKS THEREAFTER )
     Route: 042
     Dates: start: 20190401
  28. CIPROFLOXACIN. [Concomitant]
     Active Substance: CIPROFLOXACIN
     Dosage: UNK
  29. TYLENOL 8HR [Concomitant]
     Active Substance: ACETAMINOPHEN
     Dosage: UNK

REACTIONS (14)
  - Ear infection [Recovering/Resolving]
  - Loss of personal independence in daily activities [Not Recovered/Not Resolved]
  - Pharyngitis streptococcal [Recovered/Resolved]
  - Mental impairment [Not Recovered/Not Resolved]
  - Diarrhoea [Unknown]
  - Impaired work ability [Not Recovered/Not Resolved]
  - Dehydration [Unknown]
  - Weight decreased [Unknown]
  - Psoriasis [Unknown]
  - Pharyngitis [Recovered/Resolved]
  - Body temperature decreased [Unknown]
  - Asthenia [Not Recovered/Not Resolved]
  - Pain [Not Recovered/Not Resolved]
  - Poor venous access [Unknown]

NARRATIVE: CASE EVENT DATE: 20190515
